FAERS Safety Report 16600018 (Version 1)
Quarter: 2019Q3

REPORT INFORMATION
  Report Type: Spontaneous
  Country: None (occurrence: US)
  Receive Date: 20190719
  Receipt Date: 20190719
  Transmission Date: 20191004
  Serious: No
  Sender: FDA-Public Use
  Company Number: US-NEXGEN PHARMA, INC.-2071059

PATIENT
  Sex: Female

DRUGS (2)
  1. BUTALBITAL, ACETAMINOPHEN, CAFFEINE CAPSULES [Suspect]
     Active Substance: ACETAMINOPHEN\BUTALBITAL\CAFFEINE
  2. FIORINAL [Concomitant]
     Active Substance: ASPIRIN\BUTALBITAL\CAFFEINE

REACTIONS (2)
  - Hypertension [None]
  - Flat affect [Unknown]
